FAERS Safety Report 9203641 (Version 2)
Quarter: 2013Q2

REPORT INFORMATION
  Report Type: Spontaneous
  Country: JP (occurrence: JP)
  Receive Date: 20130402
  Receipt Date: 20130409
  Transmission Date: 20140414
  Serious: Yes (Life-Threatening)
  Sender: FDA-Public Use
  Company Number: JP-COVIDIEN/TYCO HEALTHCARE/MALLINCKRODT-T201301495

PATIENT
  Age: 69 Year
  Sex: Male
  Weight: 74 kg

DRUGS (5)
  1. OPTIRAY [Suspect]
     Indication: ARTERIOGRAM
     Dosage: 74 ML, SINGLE
     Route: 042
     Dates: start: 20130325, end: 20130325
  2. AMLODIPINE [Concomitant]
     Indication: HYPERTENSION
     Dosage: 5 MG, QD
     Route: 048
     Dates: start: 20121128
  3. ATENOLOL [Concomitant]
     Indication: COMPUTERISED TOMOGRAM
     Dosage: 25 MG, QD
     Route: 048
     Dates: start: 20130325, end: 20130325
  4. PROPRANOLOL [Concomitant]
     Indication: COMPUTERISED TOMOGRAM
     Dosage: 4 MG, QD
     Route: 042
     Dates: start: 20130325, end: 20130325
  5. NITROGLYCERIN [Concomitant]
     Indication: COMPUTERISED TOMOGRAM
     Dosage: 0.3 MG, QD
     Route: 060
     Dates: start: 20130325, end: 20130325

REACTIONS (6)
  - Loss of consciousness [Recovered/Resolved]
  - Bradycardia [Recovered/Resolved]
  - Dyspnoea [Recovered/Resolved]
  - Feeling cold [Recovered/Resolved]
  - Chest pain [Recovered/Resolved]
  - Rash generalised [Recovered/Resolved]
